FAERS Safety Report 10796115 (Version 3)
Quarter: 2015Q1

REPORT INFORMATION
  Report Type: Report from Study
  Country: BR (occurrence: BR)
  Receive Date: 20150216
  Receipt Date: 20150326
  Transmission Date: 20150721
  Serious: Yes (Death, Other)
  Sender: FDA-Public Use
  Company Number: BR-ROCHE-1537644

PATIENT
  Age: 22 Year
  Sex: Female
  Weight: 50 kg

DRUGS (4)
  1. HERCEPTIN [Suspect]
     Active Substance: TRASTUZUMAB
     Indication: HER-2 POSITIVE BREAST CANCER
     Route: 042
     Dates: start: 201402, end: 201402
  2. HERCEPTIN [Suspect]
     Active Substance: TRASTUZUMAB
     Indication: BREAST NEOPLASM
  3. GEMCITABINE [Concomitant]
     Active Substance: GEMCITABINE\GEMCITABINE HYDROCHLORIDE
     Indication: BREAST NEOPLASM
     Dosage: DAY 1 AND 8
     Route: 042
     Dates: start: 201402, end: 201402
  4. CISPLATIN. [Concomitant]
     Active Substance: CISPLATIN
     Indication: BREAST NEOPLASM
     Dosage: DAY 1
     Route: 042
     Dates: start: 201402, end: 201402

REACTIONS (3)
  - Therapeutic response decreased [Fatal]
  - Hepatic failure [Unknown]
  - Liver disorder [Fatal]
